FAERS Safety Report 4699447-8 (Version None)
Quarter: 2005Q2

REPORT INFORMATION
  Report Type: 
  Country: None (occurrence: None)
  Receive Date: 20050624
  Receipt Date: 20050317
  Transmission Date: 20051028
  Serious: Yes (Death, Hospitalization)
  Sender: FDA-Public Use
  Company Number: US-MERCK-0503USA03478

PATIENT
  Age: 72 Year
  Sex: Female
  Weight: 91 kg

DRUGS (9)
  1. VIOXX [Suspect]
     Indication: OSTEOARTHRITIS
     Route: 048
     Dates: start: 20000705, end: 20030315
  2. INDOCIN [Concomitant]
     Route: 065
     Dates: end: 20000630
  3. GLIPIZIDE [Concomitant]
     Route: 048
  4. HYDRODIURIL [Concomitant]
     Route: 048
     Dates: end: 20030314
  5. GLUCOPHAGE [Concomitant]
     Route: 048
  6. ZESTRIL [Concomitant]
     Route: 048
     Dates: end: 20030314
  7. LOPRESSOR [Concomitant]
     Route: 048
     Dates: end: 20030314
  8. GLYBURIDE [Concomitant]
     Route: 065
  9. TIMOPTIC [Concomitant]
     Route: 065

REACTIONS (11)
  - ACUTE MYOCARDIAL INFARCTION [None]
  - BLOOD UREA INCREASED [None]
  - CARDIO-RESPIRATORY ARREST [None]
  - CHEST PAIN [None]
  - COUGH [None]
  - DEATH [None]
  - DEHYDRATION [None]
  - HYPOKALAEMIA [None]
  - OSTEOPENIA [None]
  - PERICARDIAL EFFUSION [None]
  - VENTRICULAR HYPOKINESIA [None]
